FAERS Safety Report 23941388 (Version 1)
Quarter: 2024Q2

REPORT INFORMATION
  Report Type: Spontaneous
  Country: GB (occurrence: GB)
  Receive Date: 20240605
  Receipt Date: 20240605
  Transmission Date: 20240716
  Serious: Yes (Death, Other)
  Sender: FDA-Public Use
  Company Number: None

PATIENT
  Age: 78 Year
  Sex: Female

DRUGS (13)
  1. CARBOPLATIN [Suspect]
     Active Substance: CARBOPLATIN
     Indication: Chemotherapy
     Dosage: UNK
     Route: 065
     Dates: start: 20231127
  2. PACLITAXEL [Suspect]
     Active Substance: PACLITAXEL
     Indication: Chemotherapy
     Dosage: UNK
     Route: 065
     Dates: start: 20231127
  3. ALVERINE [Concomitant]
     Active Substance: ALVERINE
     Indication: Product used for unknown indication
     Dosage: 1 - 2 TABLETS THREE TIMES A DAY
     Route: 065
  4. AVEENO [Concomitant]
     Active Substance: DIMETHICONE\HOMOSALATE\OCTINOXATE\OCTISALATE\TITANIUM DIOXIDE
     Indication: Product used for unknown indication
     Dosage: AS DIRECTED
     Route: 065
  5. BIMATOPROST [Concomitant]
     Active Substance: BIMATOPROST
     Indication: Product used for unknown indication
     Dosage: TO BE USED IN THE AFFECTED EYE (S)
     Route: 065
  6. COCODAMOL [Concomitant]
     Active Substance: ACETAMINOPHEN\CODEINE PHOSPHATE
     Indication: Product used for unknown indication
     Dosage: 1 DOSAGE FORM, QID
     Route: 065
  7. DOMPERIDONE [Concomitant]
     Active Substance: DOMPERIDONE
     Indication: Product used for unknown indication
     Dosage: PRN
  8. DORZOLAMIDE [Concomitant]
     Active Substance: DORZOLAMIDE
     Indication: Product used for unknown indication
     Dosage: ONE DROP TO BE USED IN THE AFFECTED EYE (S)
     Route: 065
  9. LANSOPRAZOLE [Concomitant]
     Active Substance: LANSOPRAZOLE
     Indication: Product used for unknown indication
     Dosage: 1 OR 2 IN THE AM
     Route: 065
  10. POLYETHYLENE GLYCOL 3350\POTASSIUM CHLORIDE\SODIUM BICARBONATE\SODIUM [Concomitant]
     Active Substance: POLYETHYLENE GLYCOL 3350\POTASSIUM CHLORIDE\SODIUM BICARBONATE\SODIUM CHLORIDE
     Indication: Constipation
     Dosage: 1 - 4 SACHETS TWICE DAILY AS REQUIRED
     Route: 048
  11. LEVOTHYROXINE [Concomitant]
     Active Substance: LEVOTHYROXINE\LEVOTHYROXINE SODIUM
     Indication: Product used for unknown indication
     Dosage: EACH MORNING 25 MICROGRAM + 50 MICROGRAM
     Route: 065
  12. ONDANSETRON [Concomitant]
     Active Substance: ONDANSETRON
     Indication: Nausea
     Dosage: 8 MILLIGRAM, BID
     Route: 065
  13. ESTRIOL [Concomitant]
     Active Substance: ESTRIOL
     Indication: Product used for unknown indication
     Dosage: USES EVERY FEW WEEKS
     Route: 065

REACTIONS (1)
  - Neutropenic sepsis [Fatal]
